FAERS Safety Report 6425695-2 (Version None)
Quarter: 2009Q4

REPORT INFORMATION
  Report Type: 
  Country: None (occurrence: None)
  Receive Date: 20091103
  Receipt Date: 20091021
  Transmission Date: 20100525
  Serious: Yes (Hospitalization, Disabling, Other)
  Sender: FDA-Public Use
  Company Number: PHHY2009JP41679

PATIENT
  Sex: Female
  Weight: 63 kg

DRUGS (11)
  1. NEORAL [Suspect]
     Indication: WEGENER'S GRANULOMATOSIS
     Dosage: 50 MG, BID
     Route: 048
     Dates: start: 20030219, end: 20080303
  2. NEORAL [Suspect]
     Dosage: 100 MG, BID
     Route: 048
     Dates: start: 20080304, end: 20090329
  3. ENDOXAN [Suspect]
     Indication: WEGENER'S GRANULOMATOSIS
     Dosage: 100 MG/DAY
     Route: 048
     Dates: start: 20021116, end: 20030518
  4. ENDOXAN [Suspect]
     Dosage: 50 MG, QD
     Route: 048
     Dates: start: 20030519, end: 20070322
  5. ENDOXAN [Suspect]
     Dosage: 50 MG, QD
     Route: 048
     Dates: start: 20070426, end: 20080428
  6. ENDOXAN [Suspect]
     Dosage: 50 MG, QD
     Route: 048
     Dates: start: 20080508, end: 20081029
  7. PREDONINE [Concomitant]
     Indication: WEGENER'S GRANULOMATOSIS
     Dosage: 60 MG/DAY
     Route: 048
     Dates: start: 20030219
  8. PREDONINE [Concomitant]
     Dosage: 15 MG, UNK
     Route: 048
     Dates: start: 20040715
  9. PREDONINE [Concomitant]
     Dosage: 10 MG, UNK
     Route: 048
  10. PREDONINE [Concomitant]
     Dosage: 20 MG, UNK
     Route: 048
     Dates: end: 20090329
  11. IMURAN [Concomitant]
     Indication: WEGENER'S GRANULOMATOSIS
     Dosage: 50 MG, UNK
     Route: 048
     Dates: start: 20060422, end: 20070425

REACTIONS (11)
  - CONTINUOUS HAEMODIAFILTRATION [None]
  - CYTOMEGALOVIRUS INFECTION [None]
  - DIABETES MELLITUS [None]
  - DIALYSIS [None]
  - HYPERKALAEMIA [None]
  - HYPERURICAEMIA [None]
  - HYPOAESTHESIA [None]
  - MALAISE [None]
  - PLATELET COUNT DECREASED [None]
  - RENAL ATROPHY [None]
  - RENAL FAILURE CHRONIC [None]
